FAERS Safety Report 16305358 (Version 2)
Quarter: 2019Q4

REPORT INFORMATION
  Report Type: Report from Study
  Country: JP (occurrence: JP)
  Receive Date: 20190513
  Receipt Date: 20191226
  Transmission Date: 20200122
  Serious: No
  Sender: FDA-Public Use
  Company Number: JP-EISAI MEDICAL RESEARCH-EC-2019-049986

PATIENT
  Age: 84 Year
  Sex: Male
  Weight: 62 kg

DRUGS (3)
  1. NU-LOTAN [Concomitant]
     Active Substance: LOSARTAN POTASSIUM
  2. AMLODIN [Concomitant]
     Active Substance: AMLODIPINE BESYLATE
  3. LENVIMA [Suspect]
     Active Substance: LENVATINIB
     Indication: HEPATOCELLULAR CARCINOMA
     Route: 048
     Dates: start: 20181218, end: 20190104

REACTIONS (1)
  - Proteinuria [Not Recovered/Not Resolved]

NARRATIVE: CASE EVENT DATE: 20190104
